FAERS Safety Report 7800694-4 (Version None)
Quarter: 2011Q4

REPORT INFORMATION
  Report Type: 
  Country: None (occurrence: None)
  Receive Date: 20111006
  Receipt Date: 20110927
  Transmission Date: 20120403
  Serious: Yes (Life-Threatening, Hospitalization, Disabling, Other)
  Sender: FDA-Public Use
  Company Number: IT-BRISTOL-MYERS SQUIBB COMPANY-14972988

PATIENT
  Age: 70 Year
  Sex: Female

DRUGS (12)
  1. MICARDIS [Concomitant]
     Dates: start: 20100107, end: 20100111
  2. SIMVACOR [Concomitant]
     Dates: start: 20100107, end: 20100111
  3. APIXABAN [Suspect]
     Indication: EMBOLISM
     Route: 058
     Dates: start: 20100108, end: 20100208
  4. PREDNISONE [Concomitant]
     Dosage: TAPERING DOSE
     Dates: start: 20100124
  5. WARFARIN SODIUM [Suspect]
     Indication: EMBOLISM
     Dosage: INTERRUPTED ON 08-FEB-10
     Route: 048
     Dates: start: 20100108, end: 20100208
  6. OMEPRAZOLE [Concomitant]
     Dates: start: 20100108, end: 20100128
  7. ENOXAPARIN SODIUM [Suspect]
     Indication: EMBOLISM
     Route: 058
     Dates: start: 20100108, end: 20100121
  8. LEVOFLOXACIN [Concomitant]
     Dates: start: 20100108, end: 20100123
  9. FLUIMUCIL [Concomitant]
     Dates: start: 20100121, end: 20100123
  10. PLACEBO [Suspect]
     Indication: EMBOLISM
     Dosage: INTERRUPTED ON 08-FEB-10
     Dates: start: 20100108, end: 20100208
  11. DOBUTAMINE HCL [Concomitant]
     Dosage: 1 DOSAGE FORM = 5 GRAMS EVERY 12-14 HOURS
  12. LEVOTHYROXINE SODIUM [Concomitant]
     Dates: start: 20100108, end: 20100121

REACTIONS (3)
  - POLYNEUROPATHY [None]
  - INTERSTITIAL LUNG DISEASE [None]
  - RESPIRATORY FAILURE [None]
